FAERS Safety Report 9077494 (Version 1)
Quarter: 2013Q1

REPORT INFORMATION
  Report Type: Spontaneous
  Country: US (occurrence: US)
  Receive Date: 20130130
  Receipt Date: 20130130
  Transmission Date: 20140127
  Serious: No
  Sender: FDA-Public Use
  Company Number: US-ABBOTT-12P-163-0966961-00

PATIENT
  Sex: Male
  Weight: 59.02 kg

DRUGS (2)
  1. HUMIRA 40 MG/0.8 ML PEN [Suspect]
     Indication: UVEITIS
     Route: 058
     Dates: start: 201101, end: 201112
  2. HUMIRA 40 MG/0.8 ML PEN [Suspect]
     Route: 058
     Dates: start: 201204

REACTIONS (3)
  - Injection site pain [Not Recovered/Not Resolved]
  - Off label use [None]
  - Eye disorder [Recovered/Resolved]
